FAERS Safety Report 15574282 (Version 11)
Quarter: 2019Q4

REPORT INFORMATION
  Report Type: Spontaneous
  Country: RO (occurrence: RO)
  Receive Date: 20181101
  Receipt Date: 20191209
  Transmission Date: 20200122
  Serious: Yes (Hospitalization, Other)
  Sender: FDA-Public Use
  Company Number: RO-AUROBINDO-AUR-APL-2018-050631

PATIENT
  Age: 80 Year
  Sex: Male

DRUGS (40)
  1. CLOPIDOGREL [Suspect]
     Active Substance: CLOPIDOGREL BISULFATE
     Indication: CEREBROVASCULAR DISORDER
  2. LERCANIDIPINE [Suspect]
     Active Substance: LERCANIDIPINE
     Indication: HYPERTENSION
     Dosage: 10 MILLIGRAM, ONCE A DAY
     Route: 065
     Dates: start: 2012
  3. OMEPRAZOLE. [Concomitant]
     Active Substance: OMEPRAZOLE
     Indication: INTERMITTENT CLAUDICATION
  4. CANDESARTAN TABLETS [Suspect]
     Active Substance: CANDESARTAN
     Indication: HYPERTENSION
     Dosage: 16 MILLIGRAM, ONCE A DAY
     Route: 065
     Dates: start: 2012
  5. RAMIPRIL. [Suspect]
     Active Substance: RAMIPRIL
     Indication: ACUTE CORONARY SYNDROME
  6. RAMIPRIL. [Suspect]
     Active Substance: RAMIPRIL
     Indication: CORONARY ARTERY DISEASE
  7. ROSUVASTATIN FILM-COATED TABLET [Suspect]
     Active Substance: ROSUVASTATIN CALCIUM
     Indication: HYPERTENSION
     Dosage: 20 MILLIGRAM, ONCE A DAY
     Route: 048
     Dates: start: 2016
  8. ROSUVASTATIN FILM-COATED TABLET [Suspect]
     Active Substance: ROSUVASTATIN CALCIUM
     Indication: ACUTE CORONARY SYNDROME
     Dosage: 10 MILLIGRAM, ONCE A DAY
     Route: 048
  9. ROSUVASTATIN FILM-COATED TABLET [Suspect]
     Active Substance: ROSUVASTATIN CALCIUM
     Indication: BLOOD PRESSURE SYSTOLIC
  10. RIVAROXABAN [Suspect]
     Active Substance: RIVAROXABAN
     Indication: MESENTERIC ARTERY THROMBOSIS
  11. LEVODOPA/CARBIDOPA [Suspect]
     Active Substance: CARBIDOPA\LEVODOPA
     Dosage: 5 MILLIGRAM, ONCE A DAY
     Route: 065
  12. CARBIDOPA. [Suspect]
     Active Substance: CARBIDOPA
     Indication: PARKINSON^S DISEASE
     Dosage: 250 MG/ 25 MG (250 MG/ 25 MG, 1 IN 1 D)
     Route: 065
     Dates: start: 2017
  13. RASAGILINE TABLET [Suspect]
     Active Substance: RASAGILINE
     Indication: PARKINSON^S DISEASE
  14. ROSUVASTATIN FILM-COATED TABLET [Suspect]
     Active Substance: ROSUVASTATIN CALCIUM
     Indication: CORONARY ARTERY DISEASE
  15. LEVODOPA [Suspect]
     Active Substance: LEVODOPA
     Indication: PARKINSON^S DISEASE
     Dosage: 250 MG/ 25 MG (250 MG/ 25 MG, 1 IN 1 D)
     Route: 005
     Dates: start: 2017
  16. AMIODARONE [Suspect]
     Active Substance: AMIODARONE
     Indication: ATRIAL FIBRILLATION
     Dosage: UNK
     Route: 065
     Dates: start: 2015
  17. OMEPRAZOLE. [Concomitant]
     Active Substance: OMEPRAZOLE
     Indication: DIZZINESS
  18. ROSUVASTATIN FILM-COATED TABLET [Suspect]
     Active Substance: ROSUVASTATIN CALCIUM
     Indication: INTERMITTENT CLAUDICATION
  19. MIDORINE [Suspect]
     Active Substance: MIDODRINE
     Indication: HYPERTENSION
     Dosage: 5 MILLIGRAM, ONCE A DAY
     Route: 065
  20. OMEPRAZOLE. [Concomitant]
     Active Substance: OMEPRAZOLE
     Indication: SYNCOPE
  21. RASAGILINE TABLET [Suspect]
     Active Substance: RASAGILINE
     Indication: HYPERTENSION
     Dosage: 1 MILLIGRAM, ONCE A DAY
     Route: 048
     Dates: start: 2017
  22. ROSUVASTATIN FILM-COATED TABLET [Suspect]
     Active Substance: ROSUVASTATIN CALCIUM
     Indication: DIZZINESS
  23. CLOPIDOGREL [Suspect]
     Active Substance: CLOPIDOGREL BISULFATE
     Indication: CORONARY ARTERY DISEASE
     Dosage: 75 MILLIGRAM, ONCE A DAY
     Route: 048
     Dates: start: 2016
  24. OMEPRAZOLE. [Concomitant]
     Active Substance: OMEPRAZOLE
     Indication: ORTHOSTATIC HYPERTENSION
  25. RAMIPRIL. [Suspect]
     Active Substance: RAMIPRIL
     Indication: HYPERTENSION
     Dosage: 5 MILLIGRAM, ONCE A DAY
     Route: 048
     Dates: start: 2016
  26. BISOPROLOL [Suspect]
     Active Substance: BISOPROLOL
     Indication: ACUTE CORONARY SYNDROME
  27. ROSUVASTATIN FILM-COATED TABLET [Suspect]
     Active Substance: ROSUVASTATIN CALCIUM
     Indication: PRESYNCOPE
  28. RIVAROXABAN [Suspect]
     Active Substance: RIVAROXABAN
     Indication: ANTICOAGULANT THERAPY
     Dosage: 20 MILLIGRAM, ONCE A DAY
     Route: 065
     Dates: start: 2016
  29. OMEPRAZOLE. [Concomitant]
     Active Substance: OMEPRAZOLE
     Indication: BLOOD PRESSURE SYSTOLIC
  30. BISOPROLOL [Suspect]
     Active Substance: BISOPROLOL
     Indication: CORONARY ARTERY DISEASE
     Dosage: 5 MILLIGRAM, ONCE A DAY
     Route: 048
     Dates: start: 2016
  31. RASAGILINE. [Suspect]
     Active Substance: RASAGILINE
     Indication: PARKINSON^S DISEASE
     Dosage: 1 MILLIGRAM, ONCE A DAY
     Route: 005
     Dates: start: 2017
  32. ROSUVASTATIN FILM-COATED TABLET [Suspect]
     Active Substance: ROSUVASTATIN CALCIUM
     Indication: ORTHOSTATIC HYPERTENSION
  33. CLOPIDOGREL [Suspect]
     Active Substance: CLOPIDOGREL BISULFATE
     Indication: ACUTE CORONARY SYNDROME
  34. LEVODOPA/CARBIDOPA [Suspect]
     Active Substance: CARBIDOPA\LEVODOPA
     Indication: PARKINSON^S DISEASE
     Dosage: 250 MILLIGRAM, ONCE A DAY
     Route: 065
     Dates: start: 2017
  35. LEVODOPA/CARBIDOPA [Suspect]
     Active Substance: CARBIDOPA\LEVODOPA
     Dosage: 275 MILLIGRAM, ONCE A DAY
     Route: 065
     Dates: start: 2017
  36. MIDORINE [Suspect]
     Active Substance: MIDODRINE
     Indication: ACUTE CORONARY SYNDROME
     Dosage: 2.5 MILLIGRAM, ONCE A DAY
     Route: 065
  37. BISOPROLOL [Suspect]
     Active Substance: BISOPROLOL
     Indication: HYPERTENSION
  38. ROSUVASTATIN FILM-COATED TABLET [Suspect]
     Active Substance: ROSUVASTATIN CALCIUM
     Indication: SYNCOPE
  39. LERCANIDIPINE [Suspect]
     Active Substance: LERCANIDIPINE
     Dosage: 1 MILLIGRAM, ONCE A DAY,10 MILLIGRAM, DAILY
     Route: 065
     Dates: start: 2012
  40. OMEPRAZOLE. [Concomitant]
     Active Substance: OMEPRAZOLE
     Indication: PRESYNCOPE
     Dosage: 40 MILLIGRAM, ONCE A DAY
     Route: 065

REACTIONS (8)
  - Abdominal pain [Unknown]
  - Syncope [Recovered/Resolved]
  - Dizziness [Recovered/Resolved]
  - Intermittent claudication [Unknown]
  - Presyncope [Recovered/Resolved]
  - Supine hypertension [Recovered/Resolved]
  - Orthostatic hypotension [Recovered/Resolved]
  - Mesenteric artery thrombosis [Unknown]

NARRATIVE: CASE EVENT DATE: 2016
